FAERS Safety Report 10573393 (Version 1)
Quarter: 2014Q4

REPORT INFORMATION
  Report Type: Spontaneous
  Country: CN (occurrence: None)
  Receive Date: 20141030
  Receipt Date: 20141030
  Transmission Date: 20150529
  Serious: Yes (Disabling, Other)
  Sender: FDA-Public Use
  Company Number: PHHY2013CN124944

PATIENT
  Age: 33 Year
  Sex: Female
  Weight: 54 kg

DRUGS (1)
  1. TELBIVUDINE [Suspect]
     Active Substance: TELBIVUDINE
     Indication: LIVER DISORDER
     Route: 048
     Dates: start: 20111018, end: 20121018

REACTIONS (3)
  - Nausea [None]
  - Decreased appetite [None]
  - Rhabdomyolysis [None]

NARRATIVE: CASE EVENT DATE: 20121018
